FAERS Safety Report 4801218-6 (Version None)
Quarter: 2005Q4

REPORT INFORMATION
  Report Type: 
  Country: None (occurrence: None)
  Receive Date: 20051011
  Receipt Date: 20050920
  Transmission Date: 20060501
  Serious: Yes (Hospitalization, Other)
  Sender: FDA-Public Use
  Company Number: ENT 2005-0109

PATIENT
  Age: 64 Year
  Sex: Male

DRUGS (19)
  1. COMTAN [Suspect]
     Indication: PARKINSON'S DISEASE
     Dosage: SEE IMAGE
     Route: 048
     Dates: start: 20030611, end: 20050509
  2. COMTAN [Suspect]
     Indication: PARKINSON'S DISEASE
     Dosage: SEE IMAGE
     Route: 048
     Dates: start: 20050510, end: 20050510
  3. COMTAN [Suspect]
     Indication: PARKINSON'S DISEASE
     Dosage: SEE IMAGE
     Route: 048
     Dates: start: 20050511, end: 20050511
  4. CABASER [Suspect]
     Indication: PARKINSON'S DISEASE
     Dosage: SEE IMAGE
     Route: 048
     Dates: start: 20040707, end: 20050627
  5. CABASER [Suspect]
     Indication: PARKINSON'S DISEASE
     Dosage: SEE IMAGE
     Route: 048
     Dates: start: 20050628, end: 20050722
  6. EC DOPARL [Suspect]
     Indication: PARKINSON'S DISEASE
     Dosage: SEE IMAGE
     Route: 048
     Dates: start: 20030709, end: 20050627
  7. EC DOPARL [Suspect]
     Indication: PARKINSON'S DISEASE
     Dosage: SEE IMAGE
     Route: 048
     Dates: start: 20050628
  8. ARTANE [Suspect]
     Indication: PARKINSON'S DISEASE
     Dosage: 4 MG ORAL
     Route: 048
     Dates: start: 20001025, end: 20050722
  9. SELEGILINE HYDROCHLORIDE [Suspect]
     Indication: PARKINSON'S DISEASE
     Dosage: SEE IMAGE
     Route: 048
     Dates: start: 20010829, end: 20050627
  10. SELEGILINE HYDROCHLORIDE [Suspect]
     Indication: PARKINSON'S DISEASE
     Dosage: SEE IMAGE
     Route: 048
     Dates: start: 20050628, end: 20050722
  11. PURSENNID [Concomitant]
  12. MAGLAX (MAGNESIUM OXIDE) [Concomitant]
  13. ADALAT [Concomitant]
  14. INDERAL [Concomitant]
  15. GASTER D [Concomitant]
  16. KETOPROFEN [Concomitant]
  17. GLYCERIN [Concomitant]
  18. JUVELA NICOTINATE [Concomitant]
  19. SELBEX [Concomitant]

REACTIONS (6)
  - DELUSION [None]
  - HALLUCINATION [None]
  - ORTHOSTATIC HYPOTENSION [None]
  - OVERDOSE [None]
  - PSYCHIATRIC SYMPTOM [None]
  - SUICIDE ATTEMPT [None]
